FAERS Safety Report 6064494-0 (Version None)
Quarter: 2009Q1

REPORT INFORMATION
  Report Type: 
  Country: None (occurrence: None)
  Receive Date: 20090203
  Receipt Date: 20090203
  Transmission Date: 20090719
  Serious: No
  Sender: FDA-Public Use
  Company Number: None

PATIENT
  Sex: Female
  Weight: 56.6996 kg

DRUGS (1)
  1. MORPHINE SULFATE INJ [Suspect]
     Indication: ABDOMINAL PAIN
     Dosage: 4 MG ONE TIME IV
     Route: 042
     Dates: start: 20090202, end: 20090202

REACTIONS (4)
  - ERYTHEMA [None]
  - FEELING HOT [None]
  - RASH MACULAR [None]
  - SKIN TIGHTNESS [None]
